FAERS Safety Report 5886125-2 (Version None)
Quarter: 2008Q3

REPORT INFORMATION
  Report Type: 
  Country: None (occurrence: None)
  Receive Date: 20080917
  Receipt Date: 20080910
  Transmission Date: 20090109
  Serious: Yes (Hospitalization)
  Sender: FDA-Public Use
  Company Number: KR-BRISTOL-MYERS SQUIBB COMPANY-14336325

PATIENT
  Age: 60 Year
  Sex: Male

DRUGS (4)
  1. CETUXIMAB [Suspect]
     Indication: HEAD AND NECK CANCER
     Dosage: 400MG/M2,1IN 1 WEEK,24APR2008-24APR2008
     Route: 042
     Dates: start: 20080501
  2. CISPLATIN [Suspect]
     Indication: HEAD AND NECK CANCER
     Dosage: 75MG/M2, 1IN 3WEEK,24APR08-04JUN08(41DAYS)
     Route: 042
     Dates: start: 20080710
  3. DOCETAXEL [Suspect]
     Indication: HEAD AND NECK CANCER
     Route: 042
     Dates: start: 20080424, end: 20080604
  4. RADIOTHERAPY [Suspect]
     Indication: HEAD AND NECK CANCER

REACTIONS (1)
  - STOMATITIS [None]
